FAERS Safety Report 10053019 (Version 1)
Quarter: 2014Q1

REPORT INFORMATION
  Report Type: Spontaneous
  Country: CA (occurrence: None)
  Receive Date: 20140331
  Receipt Date: 20140331
  Transmission Date: 20141002
  Serious: Yes (Hospitalization, Other)
  Sender: FDA-Public Use
  Company Number: 2014CA00277

PATIENT
  Age: 60 Year
  Sex: Male
  Weight: 61.1 kg

DRUGS (15)
  1. NEVIRAPINE [Suspect]
  2. RIVAROXABAN [Suspect]
  3. LAMIVUDINE [Concomitant]
  4. ZIDOVUDINE (ZIDOVUDINE) [Concomitant]
  5. AMLODIPINE [Concomitant]
  6. METOPROLOL [Concomitant]
  7. LISINOPRIL [Concomitant]
  8. HYDROCHLOROTHIAZIDE [Concomitant]
  9. ATORVASTATIN [Concomitant]
  10. ACETYLSALICYLIC ACID [Concomitant]
  11. CELECOXIB [Concomitant]
  12. OMEPRAZOLE [Concomitant]
  13. GABAPENTIN [Concomitant]
  14. LAMOTRIGINE [Concomitant]
  15. DALTEPARIN [Concomitant]

REACTIONS (12)
  - Embolism venous [None]
  - Drug interaction [None]
  - Dyspnoea [None]
  - Chest pain [None]
  - Haemoglobin decreased [None]
  - Platelet count decreased [None]
  - Alanine aminotransferase increased [None]
  - Deep vein thrombosis [None]
  - Sinus tachycardia [None]
  - Electrocardiogram ST-T segment abnormal [None]
  - Mitral valve incompetence [None]
  - Tricuspid valve incompetence [None]
